FAERS Safety Report 7391788-9 (Version None)
Quarter: 2011Q2

REPORT INFORMATION
  Report Type: 
  Country: None (occurrence: None)
  Receive Date: 20110404
  Receipt Date: 20110329
  Transmission Date: 20111010
  Serious: No
  Sender: FDA-Public Use
  Company Number: US-PFIZER INC-2011070338

PATIENT
  Sex: Male
  Weight: 99.773 kg

DRUGS (3)
  1. AZITHROMYCIN [Suspect]
     Indication: COUGH
  2. AZITHROMYCIN [Suspect]
     Indication: NASOPHARYNGITIS
     Dosage: 250 MG, DAILY
     Route: 048
     Dates: start: 20110210, end: 20110214
  3. AZITHROMYCIN [Suspect]
     Indication: INFLUENZA

REACTIONS (1)
  - DIARRHOEA [None]
